FAERS Safety Report 11648356 (Version 4)
Quarter: 2017Q4

REPORT INFORMATION
  Report Type: Spontaneous
  Country: AR (occurrence: AR)
  Receive Date: 20151021
  Receipt Date: 20171124
  Transmission Date: 20180320
  Serious: Yes (Other)
  Sender: FDA-Public Use
  Company Number: AR-PFIZER INC-2015341124

PATIENT
  Age: 56 Year
  Sex: Male

DRUGS (2)
  1. SUTENT [Suspect]
     Active Substance: SUNITINIB MALATE
     Indication: METASTATIC RENAL CELL CARCINOMA
     Dosage: 50 MG, CYCLIC (4/2 SCHEME)
     Dates: start: 20110601
  2. SUTENT [Suspect]
     Active Substance: SUNITINIB MALATE
     Dosage: 50 MG, CYCLIC (4/2 SCHEME)

REACTIONS (14)
  - Decreased appetite [Recovering/Resolving]
  - Pain in extremity [Recovering/Resolving]
  - Gait inability [Recovering/Resolving]
  - Thyroid disorder [Recovered/Resolved]
  - Weight decreased [Recovering/Resolving]
  - Yellow skin [Recovering/Resolving]
  - Agitation [Recovering/Resolving]
  - Limb injury [Not Recovered/Not Resolved]
  - Malaise [Recovering/Resolving]
  - Hyperkeratosis [Not Recovered/Not Resolved]
  - Polyp [Recovering/Resolving]
  - Liver disorder [Recovering/Resolving]
  - Speech disorder [Recovering/Resolving]
  - Platelet count increased [Recovering/Resolving]

NARRATIVE: CASE EVENT DATE: 201106
